FAERS Safety Report 7072107-4 (Version None)
Quarter: 2010Q4

REPORT INFORMATION
  Report Type: 
  Country: None (occurrence: None)
  Receive Date: 20101029
  Receipt Date: 20101019
  Transmission Date: 20110411
  Serious: Yes (Other)
  Sender: FDA-Public Use
  Company Number: US-JNJFOC-20101005290

PATIENT
  Sex: Female

DRUGS (3)
  1. REMICADE [Suspect]
     Indication: RHEUMATOID ARTHRITIS
     Dosage: 2 DOSES, 3RD INFUSION DUE 22-OCT-2010
     Route: 042
  2. IMURAN [Concomitant]
     Indication: RHEUMATOID ARTHRITIS
  3. PREDNISOLONE [Concomitant]
     Indication: RHEUMATOID ARTHRITIS

REACTIONS (7)
  - EYE SWELLING [None]
  - HEADACHE [None]
  - INFLAMMATION [None]
  - MIGRAINE [None]
  - PRURITUS [None]
  - SACROILIITIS [None]
  - VASCULITIS [None]
